FAERS Safety Report 10581217 (Version 1)
Quarter: 2014Q4

REPORT INFORMATION
  Report Type: Spontaneous
  Country: US (occurrence: None)
  Receive Date: 20141112
  Receipt Date: 20141112
  Transmission Date: 20150529
  Serious: Yes (Hospitalization)
  Sender: FDA-Public Use
  Company Number: None

PATIENT
  Age: 78 Year
  Sex: Female
  Weight: 50 kg

DRUGS (20)
  1. LEVOTHYROXINE (SYNTHROID, LEVOTHROID) [Concomitant]
  2. FENTANYL (DURAGESIC) [Concomitant]
  3. PHENYTOIN. [Suspect]
     Active Substance: PHENYTOIN
     Indication: SEIZURE
     Route: 048
  4. LANTUS [Concomitant]
     Active Substance: INSULIN GLARGINE
  5. LISINOPRIL (PRINIVIL, ZESTRIL) [Concomitant]
  6. NYSTATIN (MYCOSTATIN) [Concomitant]
  7. ASPIRIN. [Concomitant]
     Active Substance: ASPIRIN
  8. OXYBUTYNIN (DITROPAN-XL) [Concomitant]
  9. INSULIN LISPRO (HUMALOG) [Concomitant]
  10. SODIUM CHLORIDE. [Concomitant]
     Active Substance: SODIUM CHLORIDE
  11. LACTULOSE SOLUTION [Concomitant]
  12. LEVETIRACETAM (KEPPRA) [Concomitant]
  13. PHENYTOIN (DILANTIN EXTENDED) [Concomitant]
  14. INSULIN ASPART (NOVOLOG) [Concomitant]
  15. SENNOSIDES (SENNA) [Concomitant]
  16. TRAMADOL (ULTRAM) [Concomitant]
  17. GLYBURIDE (DIABETA) [Concomitant]
  18. METFORMIN (GLUCOPHAGE) [Concomitant]
  19. OXYCODONE (ROXICODONE) [Concomitant]
  20. ONDANSETRON (ZOFRAN-ODT) [Concomitant]

REACTIONS (6)
  - Toxic encephalopathy [None]
  - Agitation [None]
  - Hypoglycaemia [None]
  - Toxicity to various agents [None]
  - Delirium [None]
  - Mental status changes [None]

NARRATIVE: CASE EVENT DATE: 20141105
